FAERS Safety Report 15334571 (Version 2)
Quarter: 2019Q2

REPORT INFORMATION
  Report Type: Spontaneous
  Country: US (occurrence: US)
  Receive Date: 20180830
  Receipt Date: 20190510
  Transmission Date: 20190711
  Serious: Yes (Other)
  Sender: FDA-Public Use
  Company Number: US-PFIZER INC-2018279824

PATIENT
  Age: 52 Year
  Sex: Male
  Weight: 61.22 kg

DRUGS (12)
  1. BACLOFEN. [Concomitant]
     Active Substance: BACLOFEN
     Dosage: 10 MG, 2X/DAY
     Route: 048
     Dates: start: 2005
  2. VENLAFAXINE [Concomitant]
     Active Substance: VENLAFAXINE HYDROCHLORIDE
     Indication: HYPOAESTHESIA
     Dosage: 150 MG, 1X/DAY
     Route: 048
     Dates: start: 2005
  3. LYRICA [Suspect]
     Active Substance: PREGABALIN
     Indication: CRANIOCEREBRAL INJURY
  4. LYRICA [Suspect]
     Active Substance: PREGABALIN
     Indication: NERVE INJURY
     Dosage: 200 MG, 3X/DAY
     Route: 048
  5. METFORMIN HCL [Concomitant]
     Active Substance: METFORMIN HYDROCHLORIDE
     Indication: DIABETES MELLITUS
     Dosage: 500 MG, 3X/DAY
     Route: 048
     Dates: start: 2005
  6. REPAGLINIDE. [Concomitant]
     Active Substance: REPAGLINIDE
     Indication: DIABETES MELLITUS
     Dosage: 4 MG, DAILY(2 TABLETS AT BREAKFAST, 3 TABLETS AT LUNCH, AND 3 TABLETS AT DINNER)
     Route: 048
  7. AMITRIPTYLINE [Concomitant]
     Active Substance: AMITRIPTYLINE
     Indication: INSOMNIA
     Dosage: 10 MG, UNK (2 TABLETS A DAY FOR 3 DAYS IN A ROW, THEN SKIP 2 DAYS)
     Route: 048
  8. CARBAMAZEPINE. [Concomitant]
     Active Substance: CARBAMAZEPINE
     Dosage: 200 MG, 3X/DAY
     Route: 048
     Dates: start: 2005
  9. TAMSULOSIN [Concomitant]
     Active Substance: TAMSULOSIN
     Indication: DYSURIA
     Dosage: 0.4 MG, 1X/DAY
     Route: 048
  10. VENLAFAXINE [Concomitant]
     Active Substance: VENLAFAXINE HYDROCHLORIDE
     Indication: MUSCLE SPASMS
  11. ZETIA [Concomitant]
     Active Substance: EZETIMIBE
     Dosage: 10 MG, 1X/DAY
     Route: 048
  12. NABUMETONE. [Concomitant]
     Active Substance: NABUMETONE
     Indication: NERVOUS SYSTEM DISORDER
     Dosage: 500 MG, 2X/DAY
     Route: 048
     Dates: start: 2005

REACTIONS (7)
  - Product use in unapproved indication [Unknown]
  - Gait inability [Unknown]
  - Hypoaesthesia [Unknown]
  - Paralysis [Unknown]
  - Pain [Recovering/Resolving]
  - Insomnia [Unknown]
  - Loss of personal independence in daily activities [Unknown]

NARRATIVE: CASE EVENT DATE: 201808
